FAERS Safety Report 4816279-8 (Version None)
Quarter: 2005Q4

REPORT INFORMATION
  Report Type: 
  Country: None (occurrence: None)
  Receive Date: 20051028
  Receipt Date: 20051019
  Transmission Date: 20060501
  Serious: Yes (Other)
  Sender: FDA-Public Use
  Company Number: 8601

PATIENT
  Age: 47 Year
  Sex: Male
  Weight: 86.1834 kg

DRUGS (6)
  1. SEPTOCAINE [Suspect]
     Indication: LOCAL ANAESTHESIA
     Dosage: 1 CARPULE INJECTED
  2. SEPTOCAINE [Suspect]
     Indication: DENTAL OPERATION
  3. HURRICAINE LIQUID [Suspect]
     Indication: LOCAL ANAESTHESIA
     Dosage: TOPICAL
     Route: 061
  4. CYCLOBENZATRIN [Concomitant]
  5. VICODIN [Concomitant]
  6. NAPROSIN [Concomitant]

REACTIONS (4)
  - EAR PAIN [None]
  - HYPOAESTHESIA ORAL [None]
  - INJECTION SITE PAIN [None]
  - PAIN IN JAW [None]
